FAERS Safety Report 8923629 (Version 1)
Quarter: 2012Q4

REPORT INFORMATION
  Report Type: Spontaneous
  Country: US (occurrence: None)
  Receive Date: 20121109
  Receipt Date: 20121109
  Transmission Date: 20130627
  Serious: No
  Sender: FDA-Public Use
  Company Number: 2012S1000744

PATIENT
  Age: 80 Year
  Sex: Male

DRUGS (6)
  1. CUBICIN [Suspect]
     Indication: INFECTION STAPHYLOCOCCAL
     Dosage: 10 MG/KG; QD
  2. TRIMETHOPRIM SULFAMETHOXAZOLE [Suspect]
     Dosage: 8 MG/KG; QD; IV
     Route: 042
  3. VANCOMYCIN [Concomitant]
  4. QUINUPRISTIN [Concomitant]
  5. DALFOPRISTIN [Concomitant]
  6. LINEZOLID [Concomitant]

REACTIONS (4)
  - Blood creatine phosphokinase increased [None]
  - Blood creatinine increased [None]
  - Nausea [None]
  - Vomiting [None]
